FAERS Safety Report 9905948 (Version 2)
Quarter: 2014Q2

REPORT INFORMATION
  Report Type: Not Available
  Country: FR (occurrence: FR)
  Receive Date: 20140218
  Receipt Date: 20140519
  Transmission Date: 20141212
  Serious: Yes (Hospitalization)
  Sender: FDA-Public Use
  Company Number: FR-NAPPMUNDI-GBR-2014-0017061

PATIENT
  Age: 40 Year
  Sex: Male

DRUGS (9)
  1. OXYCONTIN LP, COMPRIME PELLICULE A LIBERATION PROLONGEE [Suspect]
     Indication: PAIN
     Dosage: 240 MG, BID
     Route: 048
  2. OXYCONTIN LP, COMPRIME PELLICULE A LIBERATION PROLONGEE [Suspect]
     Dosage: UNK
  3. OXYNORM 20 MG, GELULE [Suspect]
     Indication: PAIN
     Dosage: 160 MG, DAILY
     Route: 048
  4. SEROPLEX [Concomitant]
     Indication: DEPRESSION
     Dosage: 20 MG, AM
     Route: 048
  5. DEPAMIDE [Concomitant]
     Indication: AFFECTIVE DISORDER
     Dosage: 300 MG, BID
     Route: 048
  6. LYRICA [Concomitant]
     Indication: PAIN
     Dosage: 300 MG, DAILY
     Route: 048
  7. ESOMEPRAZOLE [Concomitant]
     Dosage: UNK UNK, DAILY
  8. GUTRON [Concomitant]
     Dosage: 5 MG, DAILY
  9. AERIUS                             /01398501/ [Concomitant]
     Dosage: 1 TABLET, DAILY

REACTIONS (2)
  - Malaise [Recovered/Resolved]
  - Loss of consciousness [Recovered/Resolved]
